FAERS Safety Report 20220702 (Version 1)
Quarter: 2021Q4

REPORT INFORMATION
  Report Type: Report from Study
  Country: US (occurrence: US)
  Receive Date: 20211223
  Receipt Date: 20211223
  Transmission Date: 20220303
  Serious: No
  Sender: FDA-Public Use
  Company Number: US-BIOVITRUM-2021US12410

PATIENT
  Age: 58 Year
  Sex: Female

DRUGS (1)
  1. KINERET [Suspect]
     Active Substance: ANAKINRA
     Indication: Pericardial disease
     Route: 058
     Dates: start: 20210526

REACTIONS (3)
  - Feeling abnormal [Unknown]
  - Inappropriate schedule of product discontinuation [Unknown]
  - Off label use [Unknown]

NARRATIVE: CASE EVENT DATE: 20210526
